FAERS Safety Report 8304514-3 (Version None)
Quarter: 2012Q2

REPORT INFORMATION
  Report Type: 
  Country: None (occurrence: None)
  Receive Date: 20120423
  Receipt Date: 20120412
  Transmission Date: 20120825
  Serious: Yes (Hospitalization)
  Sender: FDA-Public Use
  Company Number: US-GLAXOSMITHKLINE-A0862613A

PATIENT
  Sex: Male
  Weight: 90.9 kg

DRUGS (5)
  1. GLUCOTROL [Concomitant]
  2. AVANDIA [Suspect]
     Indication: DIABETES MELLITUS
     Dosage: 4MG PER DAY
     Route: 048
     Dates: start: 20020408
  3. HYDROCHLOROTHIAZIDE [Concomitant]
  4. NORVASC [Concomitant]
  5. ENALAPRIL [Concomitant]

REACTIONS (1)
  - RENAL FAILURE [None]
